FAERS Safety Report 10304282 (Version 3)
Quarter: 2015Q2

REPORT INFORMATION
  Report Type: Spontaneous
  Country: VE (occurrence: VE)
  Receive Date: 20140714
  Receipt Date: 20150626
  Transmission Date: 20150821
  Serious: Yes (Life-Threatening, Hospitalization, Other)
  Sender: FDA-Public Use
  Company Number: VE-UCBSA-2014004927

PATIENT
  Age: 10 Year
  Sex: Female

DRUGS (8)
  1. KEPPRA [Suspect]
     Active Substance: LEVETIRACETAM
     Indication: PRIMITIVE NEUROECTODERMAL TUMOUR
     Dosage: 750 MG, 2X/DAY (BID); FOR 2 DAYS
     Route: 048
     Dates: start: 2014, end: 2014
  2. KEPPRA [Suspect]
     Active Substance: LEVETIRACETAM
     Dosage: 500 MG, 2X/DAY (BID)
     Route: 048
     Dates: start: 20140614, end: 20140630
  3. TRAMADOL [Concomitant]
     Active Substance: TRAMADOL
     Indication: HEADACHE
  4. KEPPRA [Suspect]
     Active Substance: LEVETIRACETAM
     Indication: EPILEPSY
     Dosage: 500 MG, 2X/DAY (BID)
     Route: 048
     Dates: start: 20140325, end: 201403
  5. PHENOBARBITONE [Concomitant]
     Active Substance: PHENOBARBITAL
  6. VALPROIC ACID. [Concomitant]
     Active Substance: VALPROIC ACID
     Indication: SEIZURE
  7. TOPIRAMATE. [Suspect]
     Active Substance: TOPIRAMATE
     Dosage: 100 MG
     Dates: start: 20140614
  8. KEPPRA [Suspect]
     Active Substance: LEVETIRACETAM
     Indication: STATUS EPILEPTICUS
     Dosage: 1000 MG, 2X/DAY (BID)
     Route: 048
     Dates: start: 2014, end: 2014

REACTIONS (22)
  - Petit mal epilepsy [Unknown]
  - Unresponsive to stimuli [Unknown]
  - Respiratory distress [Unknown]
  - Abasia [Unknown]
  - Nausea [Unknown]
  - Burning sensation [Unknown]
  - Thrombocytopenia [Unknown]
  - Skin discolouration [Unknown]
  - Paraesthesia [Unknown]
  - Memory impairment [Unknown]
  - Headache [Unknown]
  - Cough [Unknown]
  - Hypoaesthesia [Unknown]
  - Respiratory tract infection [Unknown]
  - Constipation [Unknown]
  - Neutropenia [Unknown]
  - Dyskinesia [Unknown]
  - Muscular weakness [Unknown]
  - Seizure [Unknown]
  - Immunosuppression [Unknown]
  - Status epilepticus [Unknown]
  - Amnesia [Unknown]

NARRATIVE: CASE EVENT DATE: 2014
